FAERS Safety Report 4302926-6 (Version None)
Quarter: 2004Q1

REPORT INFORMATION
  Report Type: 
  Country: None (occurrence: None)
  Receive Date: 20040223
  Receipt Date: 20040223
  Transmission Date: 20041129
  Serious: No
  Sender: FDA-Public Use
  Company Number: None

PATIENT
  Age: 30 Year
  Sex: Female
  Weight: 58.9676 kg

DRUGS (2)
  1. AVELOX [Suspect]
     Indication: TACHYCARDIA
     Dosage: ONE PILL /D 5 PILL PAC ORAL
     Route: 048
     Dates: start: 20030802, end: 20030802
  2. AVELOX [Suspect]
     Indication: TREMOR
     Dosage: ONE PILL /D 5 PILL PAC ORAL
     Route: 048
     Dates: start: 20030802, end: 20030802

REACTIONS (3)
  - PALPITATIONS [None]
  - TACHYCARDIA [None]
  - TREMOR [None]
